FAERS Safety Report 5908914-8 (Version None)
Quarter: 2008Q4

REPORT INFORMATION
  Report Type: 
  Country: None (occurrence: None)
  Receive Date: 20081006
  Receipt Date: 20080930
  Transmission Date: 20090506
  Serious: Yes (Disabling, Other)
  Sender: FDA-Public Use
  Company Number: US-MERCK-0809USA03903

PATIENT
  Age: 81 Year
  Sex: Female

DRUGS (6)
  1. JANUVIA [Suspect]
     Indication: DIABETES MELLITUS
     Route: 048
     Dates: start: 20080901, end: 20080927
  2. JANUVIA [Suspect]
     Route: 048
     Dates: start: 20080929
  3. FOSAMAX [Suspect]
     Indication: OSTEOPOROSIS
     Route: 048
     Dates: start: 20080101, end: 20080101
  4. NORVASC [Concomitant]
     Route: 065
  5. TYLENOL (CAPLET) [Concomitant]
     Route: 065
  6. XANAX [Concomitant]
     Route: 065

REACTIONS (14)
  - ABDOMINAL PAIN UPPER [None]
  - BLINDNESS [None]
  - CONSTIPATION [None]
  - DIARRHOEA [None]
  - DRY SKIN [None]
  - FATIGUE [None]
  - FLATULENCE [None]
  - GENERALISED OEDEMA [None]
  - HEADACHE [None]
  - NEPHROLITHIASIS [None]
  - PRURITUS [None]
  - PYREXIA [None]
  - RENAL PAIN [None]
  - URINE OUTPUT DECREASED [None]
